FAERS Safety Report 6144464-4 (Version None)
Quarter: 2009Q2

REPORT INFORMATION
  Report Type: 
  Country: None (occurrence: None)
  Receive Date: 20090406
  Receipt Date: 20090331
  Transmission Date: 20091009
  Serious: Yes (Other)
  Sender: FDA-Public Use
  Company Number: FR-ROCHE-625067

PATIENT
  Sex: Female

DRUGS (3)
  1. VALIUM [Suspect]
     Route: 048
  2. TERCIAN [Suspect]
     Route: 048
     Dates: end: 20090318
  3. ABILIFY [Suspect]
     Route: 048

REACTIONS (3)
  - ANTINUCLEAR ANTIBODY POSITIVE [None]
  - CHOLANGITIS [None]
  - SMOOTH MUSCLE ANTIBODY POSITIVE [None]
